FAERS Safety Report 7601887-1 (Version None)
Quarter: 2011Q3

REPORT INFORMATION
  Report Type: 
  Country: None (occurrence: None)
  Receive Date: 20110711
  Receipt Date: 20110626
  Transmission Date: 20111222
  Serious: Yes (Other)
  Sender: FDA-Public Use
  Company Number: SG-BAYER-2011-055622

PATIENT
  Age: 52 Year
  Sex: Male

DRUGS (2)
  1. CODEINE [Suspect]
     Route: 048
  2. ACETYLSALICYLIC ACID SRT [Suspect]
     Route: 048

REACTIONS (1)
  - ANGIOEDEMA [None]
